FAERS Safety Report 12973107 (Version 1)
Quarter: 2016Q4

REPORT INFORMATION
  Report Type: Report from Study
  Country: US (occurrence: US)
  Receive Date: 20161124
  Receipt Date: 20161124
  Transmission Date: 20170207
  Serious: Yes (Hospitalization)
  Sender: FDA-Public Use
  Company Number: US-BIOGEN-2016BI00321182

PATIENT
  Age: 63 Year
  Sex: Female
  Weight: 77.18 kg

DRUGS (1)
  1. TECFIDERA [Suspect]
     Active Substance: DIMETHYL FUMARATE
     Indication: MULTIPLE SCLEROSIS
     Dosage: MAINTENANCE DOSE
     Route: 048
     Dates: start: 20140630

REACTIONS (4)
  - Knee operation [Recovered/Resolved]
  - Unresponsive to stimuli [Recovered/Resolved]
  - Cognitive disorder [Recovered/Resolved]
  - Post procedural stroke [Recovered/Resolved]

NARRATIVE: CASE EVENT DATE: 20161108
